FAERS Safety Report 5886549-3 (Version None)
Quarter: 2008Q3

REPORT INFORMATION
  Report Type: 
  Country: None (occurrence: None)
  Receive Date: 20080917
  Receipt Date: 20080905
  Transmission Date: 20090109
  Serious: Yes (Death, Hospitalization)
  Sender: FDA-Public Use
  Company Number: FR-ROCHE-585333

PATIENT
  Sex: Male

DRUGS (4)
  1. CAPECITABINE [Suspect]
     Indication: GASTRIC CANCER
     Route: 065
     Dates: start: 20080521
  2. EPIRUBICIN [Suspect]
     Indication: GASTRIC CANCER
     Route: 065
     Dates: start: 20080521
  3. CISPLATIN [Suspect]
     Indication: GASTRIC CANCER
     Route: 065
     Dates: start: 20080521
  4. GRANOCYTE 34 [Concomitant]
     Route: 058
     Dates: start: 20080528, end: 20080604

REACTIONS (1)
  - SEPTIC SHOCK [None]
